FAERS Safety Report 15265100 (Version 3)
Quarter: 2018Q3

REPORT INFORMATION
  Report Type: Spontaneous
  Country: DE (occurrence: DE)
  Receive Date: 20180810
  Receipt Date: 20180823
  Transmission Date: 20181010
  Serious: Yes (Congenital Anomaly, Other)
  Sender: FDA-Public Use
  Company Number: DE-ABBVIE-18S-062-2445145-00

PATIENT
  Sex: Male
  Weight: 1.6 kg

DRUGS (5)
  1. PREZISTA [Suspect]
     Active Substance: DARUNAVIR ETHANOLATE
     Indication: MATERNAL EXPOSURE TIMING UNSPECIFIED
     Route: 064
  2. ISENTRESS [Suspect]
     Active Substance: RALTEGRAVIR POTASSIUM
     Indication: MATERNAL EXPOSURE TIMING UNSPECIFIED
     Route: 064
  3. TRIZIVIR [Suspect]
     Active Substance: ABACAVIR SULFATE\LAMIVUDINE\ZIDOVUDINE
     Indication: MATERNAL EXPOSURE TIMING UNSPECIFIED
     Route: 064
  4. NORVIR [Suspect]
     Active Substance: RITONAVIR
     Indication: MATERNAL EXPOSURE TIMING UNSPECIFIED
     Route: 064
  5. VIREAD [Suspect]
     Active Substance: TENOFOVIR DISOPROXIL FUMARATE
     Indication: MATERNAL EXPOSURE TIMING UNSPECIFIED
     Route: 064

REACTIONS (5)
  - Oesophageal atresia [Unknown]
  - Premature baby [Unknown]
  - Hemivertebra [Unknown]
  - Spine malformation [Unknown]
  - Foetal exposure during pregnancy [Unknown]

NARRATIVE: CASE EVENT DATE: 20100810
